FAERS Safety Report 11644031 (Version 3)
Quarter: 2016Q2

REPORT INFORMATION
  Report Type: Spontaneous
  Country: US (occurrence: US)
  Receive Date: 20151020
  Receipt Date: 20160413
  Transmission Date: 20160815
  Serious: Yes (Hospitalization)
  Sender: FDA-Public Use
  Company Number: US-AUROBINDO-AUR-APL-2015-09337

PATIENT
  Age: 12 Month
  Sex: Male

DRUGS (1)
  1. FLECAINIDE [Suspect]
     Active Substance: FLECAINIDE
     Indication: SUPRAVENTRICULAR TACHYCARDIA
     Dosage: 4 MG, 3 TIMES A DAY
     Route: 048

REACTIONS (10)
  - Ventricular tachycardia [Unknown]
  - Unresponsive to stimuli [Unknown]
  - Capillary disorder [Unknown]
  - Electrocardiogram QRS complex prolonged [Unknown]
  - Ventricular arrhythmia [Unknown]
  - Tachycardia [Recovered/Resolved]
  - Drug level increased [Unknown]
  - Toxicity to various agents [Unknown]
  - Sinus tachycardia [Recovered/Resolved]
  - Crying [Unknown]

NARRATIVE: CASE EVENT DATE: 20141117
